FAERS Safety Report 6363562-3 (Version None)
Quarter: 2009Q3

REPORT INFORMATION
  Report Type: 
  Country: None (occurrence: None)
  Receive Date: 20090919
  Receipt Date: 20090701
  Transmission Date: 20100115
  Serious: No
  Sender: FDA-Public Use
  Company Number: US-ABBOTT-09P-163-0583310-00

PATIENT
  Sex: Male
  Weight: 46.762 kg

DRUGS (8)
  1. HUMIRA [Suspect]
     Indication: CROHN'S DISEASE
     Dosage: DAY 1
     Dates: start: 20090401, end: 20090513
  2. HUMIRA [Suspect]
     Dates: start: 20090616
  3. PREDNISONE [Concomitant]
     Indication: DRUG USE FOR UNKNOWN INDICATION
     Dates: start: 20090105
  4. KEPPRA [Concomitant]
     Indication: CONVULSION
  5. XANAX [Concomitant]
     Indication: CONVULSION
  6. ADALIDE [Concomitant]
     Indication: HYPERTENSION
  7. NORTRIPTYLINE HCL [Concomitant]
     Indication: INSOMNIA
  8. MULTI-VITAMINS [Concomitant]
     Indication: DRUG USE FOR UNKNOWN INDICATION

REACTIONS (8)
  - COUGH [None]
  - CROHN'S DISEASE [None]
  - GASTROINTESTINAL INFECTION [None]
  - HYPERHIDROSIS [None]
  - INJECTION SITE SCAR [None]
  - OROPHARYNGEAL PAIN [None]
  - RHINORRHOEA [None]
  - SLUGGISHNESS [None]
